FAERS Safety Report 7441849-0 (Version None)
Quarter: 2011Q2

REPORT INFORMATION
  Report Type: 
  Country: None (occurrence: None)
  Receive Date: 20110428
  Receipt Date: 20110421
  Transmission Date: 20111010
  Serious: Yes (Hospitalization)
  Sender: FDA-Public Use
  Company Number: FR-SANOFI-AVENTIS-2011SA025394

PATIENT
  Age: 50 Year
  Sex: Female

DRUGS (7)
  1. MITOXANTRONE [Suspect]
     Route: 042
     Dates: start: 20010301, end: 20010901
  2. XATRAL [Suspect]
     Indication: BLADDER DYSFUNCTION
     Route: 048
     Dates: start: 19980101
  3. IMMUNOSUPPRESSIVE AGENTS [Suspect]
     Dates: start: 20080908
  4. IMUREL [Suspect]
     Route: 048
     Dates: start: 20050401, end: 20080301
  5. ZOLOFT [Suspect]
     Indication: DEPRESSION
     Route: 048
     Dates: start: 20060601
  6. BACLOFEN [Suspect]
     Indication: MUSCLE CONTRACTURE
     Dosage: 15-30 MG
     Route: 048
     Dates: start: 20100906
  7. ZOMIG [Suspect]
     Indication: HEADACHE
     Route: 048

REACTIONS (2)
  - OFF LABEL USE [None]
  - ENDOMETRIAL CANCER [None]
